FAERS Safety Report 6933690-X (Version None)
Quarter: 2010Q3

REPORT INFORMATION
  Report Type: 
  Country: None (occurrence: None)
  Receive Date: 20100820
  Receipt Date: 20100817
  Transmission Date: 20110219
  Serious: Yes (Death, Hospitalization, Other)
  Sender: FDA-Public Use
  Company Number: US-JNJFOC-20100306660

PATIENT
  Sex: Male
  Weight: 90.72 kg

DRUGS (11)
  1. REMICADE [Suspect]
     Indication: CROHN'S DISEASE
     Dosage: INTERMITTENT, EPISODIC INFUSIONS,
     Route: 042
  2. REMICADE [Suspect]
     Route: 042
  3. REMICADE [Suspect]
     Route: 042
  4. MERCAPTOPURINE [Concomitant]
  5. CORGARD [Concomitant]
  6. FOSAMAX [Concomitant]
  7. TRILIPIX [Concomitant]
  8. NIASPAN [Concomitant]
  9. FISH OIL [Concomitant]
  10. VITAMIN TAB [Concomitant]
  11. CALCIUM [Concomitant]

REACTIONS (6)
  - DEATH [None]
  - DERMATITIS ALLERGIC [None]
  - HEPATOSPLENIC T-CELL LYMPHOMA [None]
  - INTESTINAL OBSTRUCTION [None]
  - IRON DEFICIENCY ANAEMIA [None]
  - SPLENIC RUPTURE [None]
